FAERS Safety Report 9880502 (Version 1)
Quarter: 2014Q1

REPORT INFORMATION
  Report Type: Spontaneous
  Country: DE (occurrence: None)
  Receive Date: 20140205
  Receipt Date: 20140205
  Transmission Date: 20141002
  Serious: Yes (Hospitalization)
  Sender: FDA-Public Use
  Company Number: DSM-2014-00096

PATIENT
  Age: 69 Year
  Sex: Female

DRUGS (2)
  1. VOTUM [Suspect]
     Indication: HYPERTENSION
     Route: 048
     Dates: start: 2013, end: 2013
  2. CRESTOR [Concomitant]

REACTIONS (5)
  - Malabsorption [None]
  - Intestinal villi atrophy [None]
  - Hypokalaemia [None]
  - Pancreatic mass [None]
  - Infection [None]
